FAERS Safety Report 11907088 (Version 1)
Quarter: 2016Q1

REPORT INFORMATION
  Report Type: Report from Study
  Country: US (occurrence: US)
  Receive Date: 20160111
  Receipt Date: 20160111
  Transmission Date: 20160526
  Serious: Yes (Hospitalization, Other)
  Sender: FDA-Public Use
  Company Number: US-JNJFOC-20160102355

PATIENT
  Age: 80 Year
  Sex: Male

DRUGS (18)
  1. ACIPHEX [Concomitant]
     Active Substance: RABEPRAZOLE SODIUM
  2. ATROVENT [Concomitant]
     Active Substance: IPRATROPIUM BROMIDE
  3. NORCO [Concomitant]
     Active Substance: ACETAMINOPHEN\HYDROCODONE BITARTRATE
  4. SYMBICORT [Concomitant]
     Active Substance: BUDESONIDE\FORMOTEROL FUMARATE DIHYDRATE
  5. ASPIRIN. [Concomitant]
     Active Substance: ASPIRIN
  6. AVODART [Concomitant]
     Active Substance: DUTASTERIDE
  7. QVAR [Concomitant]
     Active Substance: BECLOMETHASONE DIPROPIONATE
  8. ATENOLOL. [Concomitant]
     Active Substance: ATENOLOL
  9. FLOMAX [Concomitant]
     Active Substance: TAMSULOSIN HYDROCHLORIDE
  10. HCTZ [Concomitant]
     Active Substance: HYDROCHLOROTHIAZIDE
  11. VITAMINS NOS [Concomitant]
     Active Substance: VITAMINS
  12. CILOSTAZOL. [Concomitant]
     Active Substance: CILOSTAZOL
  13. FELODIPINE. [Concomitant]
     Active Substance: FELODIPINE
  14. CYCLOBENZAPRINE [Concomitant]
     Active Substance: CYCLOBENZAPRINE
  15. PROVENTIL [Concomitant]
     Active Substance: ALBUTEROL
  16. IMBRUVICA [Suspect]
     Active Substance: IBRUTINIB
     Indication: CHRONIC LYMPHOCYTIC LEUKAEMIA
     Route: 048
     Dates: start: 20150417, end: 2015
  17. MAGNESIUM [Concomitant]
     Active Substance: MAGNESIUM
  18. DIOVAN [Concomitant]
     Active Substance: VALSARTAN

REACTIONS (4)
  - Suicide attempt [Recovering/Resolving]
  - Depression [Recovering/Resolving]
  - Contusion [Unknown]
  - Peripheral swelling [Unknown]

NARRATIVE: CASE EVENT DATE: 2015
